FAERS Safety Report 9283517 (Version 3)
Quarter: 2013Q3

REPORT INFORMATION
  Report Type: Spontaneous
  Country: NO (occurrence: NO)
  Receive Date: 20130510
  Receipt Date: 20130716
  Transmission Date: 20140515
  Serious: Yes (Life-Threatening, Hospitalization)
  Sender: FDA-Public Use
  Company Number: NO-TEVA-404406USA

PATIENT
  Age: 56 Year
  Sex: Female

DRUGS (2)
  1. BENDAMUSTIN [Suspect]
     Indication: CHRONIC LYMPHOCYTIC LEUKAEMIA
     Dosage: UNKNOWN/D
     Route: 042
     Dates: start: 20130114, end: 20130212
  2. IBUX [Concomitant]
     Indication: PAIN
     Dosage: 400 MILLIGRAM DAILY;

REACTIONS (3)
  - Hepatitis [Recovered/Resolved with Sequelae]
  - Hepatic failure [Recovered/Resolved with Sequelae]
  - General physical health deterioration [Recovered/Resolved with Sequelae]
